FAERS Safety Report 15670446 (Version 1)
Quarter: 2018Q4

REPORT INFORMATION
  Report Type: Spontaneous
  Country: US (occurrence: US)
  Receive Date: 20181119
  Receipt Date: 20181119
  Transmission Date: 20190205
  Serious: Yes (Other)
  Sender: FDA-Public Use
  Company Number: None

PATIENT
  Age: 38 Year
  Sex: Male
  Weight: 83.25 kg

DRUGS (3)
  1. CHLORAPREP [Suspect]
     Active Substance: CHLORHEXIDINE GLUCONATE\ISOPROPYL ALCOHOL
     Indication: PREOPERATIVE CARE
     Route: 061
     Dates: start: 20181108, end: 20181108
  2. MASTISOL [Suspect]
     Active Substance: DEVICE
     Indication: POSTOPERATIVE CARE
     Route: 061
     Dates: start: 20181108, end: 20181108
  3. CHLORAPREP [Suspect]
     Active Substance: CHLORHEXIDINE GLUCONATE\ISOPROPYL ALCOHOL
     Indication: INFECTION PROPHYLAXIS
     Route: 061
     Dates: start: 20181108, end: 20181108

REACTIONS (3)
  - Application site reaction [None]
  - Hypersensitivity [None]
  - Rash pruritic [None]

NARRATIVE: CASE EVENT DATE: 20181108
